FAERS Safety Report 8947893 (Version 1)
Quarter: 2012Q4

REPORT INFORMATION
  Report Type: Spontaneous
  Country: US (occurrence: None)
  Receive Date: 20121127
  Receipt Date: 20121127
  Transmission Date: 20130627
  Serious: Yes (Hospitalization)
  Sender: FDA-Public Use
  Company Number: ACO_33000_2012

PATIENT
  Age: 66 Year
  Sex: Female
  Weight: 49 kg

DRUGS (8)
  1. AMPYRA (DALFAMPRIDINE) TABLET, 10MG [Suspect]
     Indication: GAIT DISTURBANCE
     Route: 048
     Dates: start: 2010
  2. AMLODIPINE (AMLODIPINE BESILATE) [Concomitant]
  3. CELEBREX (CELECOXIB) [Concomitant]
  4. CYMBALTA (DULOXETINE HYDROCHLORIDE) [Concomitant]
  5. NEURONTIN (GABAPENTIN) [Concomitant]
  6. LOSARTAN (LOSARTAN POTASSIUM) [Concomitant]
  7. OXYBUTYN (OXYBUTYNIN HYDROCHLORIDE) [Concomitant]
  8. FLORASTOR (SACCHAROMYCES BOULARDIL) [Concomitant]

REACTIONS (8)
  - Respiratory disorder [None]
  - Lung disorder [None]
  - Dehydration [None]
  - Urinary tract infection bacterial [None]
  - Dizziness postural [None]
  - Thirst [None]
  - Asthenia [None]
  - Polydipsia [None]
